FAERS Safety Report 4377666-8 (Version None)
Quarter: 2004Q2

REPORT INFORMATION
  Report Type: 
  Country: None (occurrence: None)
  Receive Date: 20040615
  Receipt Date: 20040401
  Transmission Date: 20050107
  Serious: Yes (Other)
  Sender: FDA-Public Use
  Company Number: US-ROCHE-363723

PATIENT
  Age: 50 Year
  Sex: Male
  Weight: 210 kg

DRUGS (5)
  1. ROCEPHIN [Suspect]
     Indication: STAPHYLOCOCCAL INFECTION
     Route: 042
  2. LANTUS [Suspect]
     Indication: DRUG USE FOR UNKNOWN INDICATION
     Route: 065
  3. CEFAZOLIN [Suspect]
     Indication: CELLULITIS
     Route: 042
  4. DURICEF [Suspect]
     Route: 042
  5. HUMALOG [Concomitant]
     Indication: DRUG USE FOR UNKNOWN INDICATION
     Route: 065

REACTIONS (2)
  - BLOOD GLUCOSE DECREASED [None]
  - DRUG INTERACTION [None]
